FAERS Safety Report 24290337 (Version 1)
Quarter: 2024Q3

REPORT INFORMATION
  Report Type: Spontaneous
  Country: JP (occurrence: JP)
  Receive Date: 20240906
  Receipt Date: 20240906
  Transmission Date: 20241017
  Serious: Yes (Other)
  Sender: MYLAN
  Company Number: JP-MYE-2024M1080357AA

PATIENT
  Age: 25 Year
  Sex: Male

DRUGS (8)
  1. CYCLOSPORINE [Suspect]
     Active Substance: CYCLOSPORINE
     Indication: Optic neuritis
     Route: 065
  2. CYCLOSPORINE [Suspect]
     Active Substance: CYCLOSPORINE
     Indication: Anti-myelin-associated glycoprotein antibodies positive
  3. PREDNISOLONE [Suspect]
     Active Substance: PREDNISOLONE
     Indication: Optic neuritis
     Dosage: 30 MILLIGRAM, QD
     Route: 048
  4. PREDNISOLONE [Suspect]
     Active Substance: PREDNISOLONE
     Indication: Anti-myelin-associated glycoprotein antibodies positive
     Dosage: 35 MILLIGRAM, QD
     Route: 048
  5. METHYLPREDNISOLONE [Suspect]
     Active Substance: METHYLPREDNISOLONE
     Indication: Optic neuritis
     Route: 065
  6. METHYLPREDNISOLONE [Suspect]
     Active Substance: METHYLPREDNISOLONE
     Indication: Anti-myelin-associated glycoprotein antibodies positive
  7. AZATHIOPRINE [Concomitant]
     Active Substance: AZATHIOPRINE
     Indication: Optic neuritis
     Route: 065
  8. AZATHIOPRINE [Concomitant]
     Active Substance: AZATHIOPRINE
     Indication: Anti-myelin-associated glycoprotein antibodies positive

REACTIONS (8)
  - Optic neuritis [Unknown]
  - Disease recurrence [Unknown]
  - Malaise [Unknown]
  - Herpes zoster [Unknown]
  - Cushingoid [Recovering/Resolving]
  - Insomnia [Recovering/Resolving]
  - Intraocular pressure increased [Unknown]
  - Weight increased [Recovering/Resolving]
